FAERS Safety Report 9276611 (Version 1)
Quarter: 2013Q2

REPORT INFORMATION
  Report Type: Spontaneous
  Country: US (occurrence: US)
  Receive Date: 20130507
  Receipt Date: 20130507
  Transmission Date: 20140414
  Serious: No
  Sender: FDA-Public Use
  Company Number: US-ASTRAZENECA-2013SE29599

PATIENT
  Age: 55 Year
  Sex: Male

DRUGS (6)
  1. CRESTOR [Suspect]
     Indication: BLOOD CHOLESTEROL INCREASED
     Route: 048
  2. TRILIPIX [Concomitant]
     Dosage: 135 MG
  3. FISH OIL [Concomitant]
     Dosage: UNKNOWN
  4. AMLODIPINE [Concomitant]
     Dosage: UNKNOWN
  5. BENICAR [Concomitant]
     Dosage: UNKNOWN
  6. ASPIRIN [Concomitant]
     Dosage: UNKNOWN

REACTIONS (2)
  - Blood cholesterol abnormal [Unknown]
  - Muscle spasms [Unknown]
